FAERS Safety Report 9869319 (Version 2)
Quarter: 2014Q1

REPORT INFORMATION
  Report Type: Spontaneous
  Country: US (occurrence: US)
  Receive Date: 20140205
  Receipt Date: 20140205
  Transmission Date: 20141002
  Serious: Yes (Death)
  Sender: FDA-Public Use
  Company Number: US-CELGENEUS-163-21880-13113512

PATIENT
  Age: 95 Year
  Sex: Female
  Weight: 70.82 kg

DRUGS (14)
  1. REVLIMID [Suspect]
     Indication: PLASMA CELL MYELOMA
     Dosage: 15 MILLIGRAM
     Route: 048
     Dates: start: 20120927
  2. REVLIMID [Suspect]
     Dosage: 10 MILLIGRAM
     Route: 048
     Dates: start: 201210
  3. REVLIMID [Suspect]
     Dosage: 10 MILLIGRAM
     Route: 048
     Dates: start: 20130208, end: 20140113
  4. DEXAMETHASONE [Concomitant]
     Indication: PRODUCT USED FOR UNKNOWN INDICATION
     Route: 065
  5. FUROSEMIDE [Concomitant]
     Indication: PRODUCT USED FOR UNKNOWN INDICATION
     Route: 065
  6. POTASSIUM [Concomitant]
     Indication: PRODUCT USED FOR UNKNOWN INDICATION
     Route: 065
  7. GABAPENTIN [Concomitant]
     Indication: PRODUCT USED FOR UNKNOWN INDICATION
     Route: 065
  8. WARFARIN [Concomitant]
     Indication: PRODUCT USED FOR UNKNOWN INDICATION
     Route: 065
  9. LISINOPRIL [Concomitant]
     Indication: PRODUCT USED FOR UNKNOWN INDICATION
     Route: 065
  10. METOPROLOL [Concomitant]
     Indication: PRODUCT USED FOR UNKNOWN INDICATION
     Route: 065
  11. OMEPRAZOLE [Concomitant]
     Indication: PRODUCT USED FOR UNKNOWN INDICATION
     Route: 065
  12. PROMETHAZINE [Concomitant]
     Indication: PRODUCT USED FOR UNKNOWN INDICATION
     Route: 065
  13. LORTAB [Concomitant]
     Indication: PRODUCT USED FOR UNKNOWN INDICATION
     Route: 065
  14. LEVOFLOXACIN [Concomitant]
     Indication: PRODUCT USED FOR UNKNOWN INDICATION
     Route: 065

REACTIONS (2)
  - Death [Fatal]
  - Plasma cell myeloma [Not Recovered/Not Resolved]
